FAERS Safety Report 7326200-9 (Version None)
Quarter: 2011Q1

REPORT INFORMATION
  Report Type: 
  Country: None (occurrence: None)
  Receive Date: 20110302
  Receipt Date: 20110217
  Transmission Date: 20110831
  Serious: Yes (Hospitalization, Other)
  Sender: FDA-Public Use
  Company Number: HU-ELI_LILLY_AND_COMPANY-HU201101000352

PATIENT
  Age: 59 Year
  Sex: Female

DRUGS (3)
  1. ZYPREXA [Concomitant]
  2. ZYPADHERA [Suspect]
     Indication: SCHIZOPHRENIA
     Dosage: 300 MG, MONTHLY (1/M) IN THE GLUTEAL AREA
     Route: 030
     Dates: start: 20101124
  3. ALCOHOL [Concomitant]

REACTIONS (7)
  - TOXICITY TO VARIOUS AGENTS [None]
  - DIZZINESS [None]
  - COGNITIVE DISORDER [None]
  - CONFUSIONAL STATE [None]
  - ASTHENIA [None]
  - COMA [None]
  - DISORIENTATION [None]
